FAERS Safety Report 4269905-9 (Version None)
Quarter: 2004Q1

REPORT INFORMATION
  Report Type: 
  Country: None (occurrence: None)
  Receive Date: 20040112
  Receipt Date: 20031230
  Transmission Date: 20041129
  Serious: Yes (Hospitalization)
  Sender: FDA-Public Use
  Company Number: US-JNJFOC-20040100317

PATIENT
  Age: 63 Year
  Sex: Female
  Weight: 99.7913 kg

DRUGS (8)
  1. INFLIXIMAB (INFLIXIMAB, RECOMBINANT) LYOPHILIZED POWDER [Suspect]
     Indication: RHEUMATOID ARTHRITIS
     Dosage: INTRAVENOUS
     Route: 042
     Dates: start: 20010220
  2. LISINOPRIL [Concomitant]
  3. ASPIRIN [Concomitant]
  4. PERCOCET [Concomitant]
  5. CELEBREX [Concomitant]
  6. AVANDIA [Concomitant]
  7. NEURONTIN [Concomitant]
  8. INSULIN [Concomitant]

REACTIONS (5)
  - ABSCESS [None]
  - BLOOD GLUCOSE INCREASED [None]
  - PAIN [None]
  - PURULENT DISCHARGE [None]
  - RASH [None]
